FAERS Safety Report 6084462-2 (Version None)
Quarter: 2009Q1

REPORT INFORMATION
  Report Type: 
  Country: None (occurrence: None)
  Receive Date: 20090219
  Receipt Date: 20090217
  Transmission Date: 20090719
  Serious: Yes (Life-Threatening, Hospitalization)
  Sender: FDA-Public Use
  Company Number: BR-ASTRAZENECA-2009UW04508

PATIENT
  Age: 52 Year
  Sex: Male

DRUGS (5)
  1. SELOZOK [Suspect]
     Indication: HYPERTENSION
     Route: 048
     Dates: start: 20040101
  2. CRESTOR [Suspect]
     Route: 048
     Dates: start: 20080101
  3. CAPTOPRIL [Concomitant]
     Route: 048
     Dates: start: 20040101
  4. ASPIRIN [Concomitant]
     Indication: ANTICOAGULANT THERAPY
     Route: 048
     Dates: start: 20040101, end: 20080101
  5. CLOPIDOGREL [Concomitant]
     Indication: PROPHYLAXIS
     Route: 048
     Dates: start: 20040101, end: 20080101

REACTIONS (4)
  - GASTRIC HAEMORRHAGE [None]
  - INFARCTION [None]
  - KIDNEY INFECTION [None]
  - ULCER [None]
